FAERS Safety Report 5152379-3 (Version None)
Quarter: 2006Q4

REPORT INFORMATION
  Report Type: 
  Country: None (occurrence: None)
  Receive Date: 20061116
  Receipt Date: 20061114
  Transmission Date: 20070319
  Serious: Yes (Death)
  Sender: FDA-Public Use
  Company Number: FR-BRISTOL-MYERS SQUIBB COMPANY-13577333

PATIENT
  Sex: Male

DRUGS (5)
  1. BLEOMYCIN [Suspect]
     Indication: LYMPHOPROLIFERATIVE DISORDER
     Route: 042
  2. DOXORUBICIN HCL [Suspect]
     Indication: LYMPHOPROLIFERATIVE DISORDER
     Route: 042
  3. CYCLOPHOSPHAMIDE [Suspect]
     Indication: LYMPHOPROLIFERATIVE DISORDER
     Route: 042
  4. VINDESINE [Suspect]
     Indication: LYMPHOPROLIFERATIVE DISORDER
     Route: 042
  5. PREDNISONE TAB [Suspect]
     Indication: LYMPHOPROLIFERATIVE DISORDER
     Route: 042

REACTIONS (1)
  - ASPERGILLOSIS [None]
